FAERS Safety Report 7980620-8 (Version None)
Quarter: 2011Q4

REPORT INFORMATION
  Report Type: 
  Country: None (occurrence: None)
  Receive Date: 20111214
  Receipt Date: 20111206
  Transmission Date: 20120403
  Serious: Yes (Death, Life-Threatening)
  Sender: FDA-Public Use
  Company Number: JP-ASTRAZENECA-2011SE68923

PATIENT
  Age: 91 Year
  Sex: Female
  Weight: 42 kg

DRUGS (4)
  1. NEXIUM [Suspect]
     Indication: DUODENAL ULCER
     Route: 048
     Dates: start: 20111109, end: 20111110
  2. IRON SUCROSE [Concomitant]
     Indication: IRON DEFICIENCY ANAEMIA
     Route: 042
     Dates: start: 20111102, end: 20111110
  3. PROMACTA [Suspect]
     Indication: DUODENAL ULCER
     Route: 048
     Dates: start: 20111109, end: 20111110
  4. INFLUENZA HA VACCINE [Concomitant]
     Route: 042
     Dates: start: 20111110, end: 20111110

REACTIONS (2)
  - MARASMUS [None]
  - HYPOTHERMIA [None]
